FAERS Safety Report 18221694 (Version 3)
Quarter: 2020Q3

REPORT INFORMATION
  Report Type: Spontaneous
  Country: US (occurrence: US)
  Receive Date: 20200902
  Receipt Date: 20200918
  Transmission Date: 20201103
  Serious: Yes (Death, Hospitalization)
  Sender: FDA-Public Use
  Company Number: US-DECIPHERA PHARMACEUTICALS LLC-2020-US-000317

PATIENT
  Sex: Female

DRUGS (2)
  1. QINLOCK [Suspect]
     Active Substance: RIPRETINIB
     Dosage: 100 MILLIGRAM, QD
     Route: 048
     Dates: start: 20200714
  2. QINLOCK [Suspect]
     Active Substance: RIPRETINIB
     Indication: MALIGNANT CONNECTIVE TISSUE NEOPLASM
     Dosage: 150 MILLIGRAM, QD
     Route: 048
     Dates: start: 20200714

REACTIONS (4)
  - Hospitalisation [Unknown]
  - Fatigue [Unknown]
  - Death [Fatal]
  - Off label use [Unknown]
